FAERS Safety Report 19644045 (Version 2)
Quarter: 2021Q3

REPORT INFORMATION
  Report Type: Report from Study
  Country: US (occurrence: US)
  Receive Date: 20210731
  Receipt Date: 20210816
  Transmission Date: 20211014
  Serious: Yes (Other)
  Sender: FDA-Public Use
  Company Number: NVSC2021US169534

PATIENT
  Age: 46 Year
  Sex: Female

DRUGS (1)
  1. ENTRESTO [Suspect]
     Active Substance: SACUBITRIL\VALSARTAN
     Indication: CARDIAC FAILURE
     Dosage: 2 DF, BID (24/26 MG)
     Route: 048
     Dates: start: 20200610

REACTIONS (4)
  - Gait disturbance [Unknown]
  - Psychomotor hyperactivity [Unknown]
  - Malaise [Unknown]
  - Decreased activity [Unknown]

NARRATIVE: CASE EVENT DATE: 20210716
